FAERS Safety Report 5022258-0 (Version None)
Quarter: 2006Q2

REPORT INFORMATION
  Report Type: 
  Country: None (occurrence: None)
  Receive Date: 20060609
  Receipt Date: 20060601
  Transmission Date: 20061013
  Serious: Yes (Hospitalization)
  Sender: FDA-Public Use
  Company Number: US-JNJFOC-20060600307

PATIENT
  Sex: Female

DRUGS (18)
  1. REMICADE [Suspect]
     Indication: RHEUMATOID ARTHRITIS
     Route: 042
  2. PLAVIX [Concomitant]
  3. ASPIRIN [Concomitant]
  4. DARVOCET [Concomitant]
  5. DARVOCET [Concomitant]
  6. CENTRUM [Concomitant]
  7. CENTRUM [Concomitant]
  8. METHOTREXATE [Concomitant]
  9. ALLEGRA [Concomitant]
  10. ALLEGRA [Concomitant]
  11. ACIPHEX [Concomitant]
  12. ESTROGENS SOL/INJ [Concomitant]
  13. NITROSTAT [Concomitant]
  14. FOLIC ACID [Concomitant]
  15. LEVOTHYROXINE SODIUM [Concomitant]
  16. LOPRESSOR [Concomitant]
  17. CELEBREX [Concomitant]
  18. AMILORIDE [Concomitant]

REACTIONS (1)
  - CORONARY ARTERY DISEASE [None]
